FAERS Safety Report 6028165-9 (Version None)
Quarter: 2008Q4

REPORT INFORMATION
  Report Type: 
  Country: None (occurrence: None)
  Receive Date: 20081231
  Receipt Date: 20081231
  Transmission Date: 20090506
  Serious: Yes (Hospitalization)
  Sender: FDA-Public Use
  Company Number: None

PATIENT
  Sex: Male
  Weight: 81.8 kg

DRUGS (12)
  1. PEMETREXED [Suspect]
     Indication: NON-SMALL CELL LUNG CANCER STAGE IV
     Dosage: 400MG/M2 Q2 WEEKS IV
     Route: 042
     Dates: start: 20080625, end: 20081015
  2. GEMCITABINE [Suspect]
     Indication: NON-SMALL CELL LUNG CANCER STAGE IV
     Dosage: 1200MG/M2 Q2 WEEKS IV
     Route: 042
     Dates: start: 20080625, end: 20081015
  3. BEVACIZUMAB [Suspect]
     Indication: NON-SMALL CELL LUNG CANCER STAGE IV
     Dosage: 10MG/KG Q2 WEEKS IV
     Route: 042
     Dates: start: 20080625, end: 20081015
  4. ACTOS [Concomitant]
  5. ACYCLOVIR [Concomitant]
  6. GLYBURIDE [Concomitant]
  7. METFORMIN [Concomitant]
  8. HUMULIN [Concomitant]
  9. LIPITOR [Concomitant]
  10. NOVOLIN [Concomitant]
  11. VERAPAMIL [Concomitant]
  12. FOLIC ACID [Concomitant]

REACTIONS (3)
  - OTITIS EXTERNA [None]
  - OTITIS MEDIA [None]
  - TYMPANIC MEMBRANE PERFORATION [None]
